FAERS Safety Report 10220441 (Version 1)
Quarter: 2014Q2

REPORT INFORMATION
  Report Type: Spontaneous
  Country: DE (occurrence: DE)
  Receive Date: 20140606
  Receipt Date: 20140606
  Transmission Date: 20141212
  Serious: Yes (Hospitalization)
  Sender: FDA-Public Use
  Company Number: DE-BIOGENIDEC-2014BI051768

PATIENT
  Sex: Female
  Weight: 70 kg

DRUGS (4)
  1. TECFIDERA [Suspect]
     Indication: RELAPSING-REMITTING MULTIPLE SCLEROSIS
     Route: 048
     Dates: start: 20140312, end: 20140318
  2. TECFIDERA [Suspect]
     Indication: RELAPSING-REMITTING MULTIPLE SCLEROSIS
     Route: 048
     Dates: start: 20140319, end: 20140326
  3. EMSELEX [Concomitant]
     Indication: BLADDER DISORDER
  4. TRIMIPRAMINE [Concomitant]
     Indication: DEPRESSION

REACTIONS (1)
  - Transient global amnesia [Recovered/Resolved]
